FAERS Safety Report 4662810-5 (Version None)
Quarter: 2005Q2

REPORT INFORMATION
  Report Type: 
  Country: None (occurrence: None)
  Receive Date: 20050512
  Receipt Date: 20050427
  Transmission Date: 20051028
  Serious: Yes (Hospitalization)
  Sender: FDA-Public Use
  Company Number: USA031153464

PATIENT
  Age: 88 Year
  Sex: Female
  Weight: 74 kg

DRUGS (6)
  1. FORTEO [Suspect]
     Indication: OSTEOPOROSIS
     Dosage: 20 UG DAY
  2. NEURONTIN (GABAPENTIN PFIZER) [Concomitant]
  3. POTASSIUM CHLORIDE [Concomitant]
  4. CALCIUM WITH VITAMIN D [Concomitant]
  5. MAGNESIUM [Concomitant]
  6. ACTONEL [Concomitant]

REACTIONS (13)
  - ARTHRALGIA [None]
  - BLOOD CHOLESTEROL INCREASED [None]
  - CONDITION AGGRAVATED [None]
  - DRUG INEFFECTIVE [None]
  - FALL [None]
  - HEART RATE IRREGULAR [None]
  - INJECTION SITE HAEMORRHAGE [None]
  - MEDICAL DEVICE COMPLICATION [None]
  - NEOPLASM MALIGNANT [None]
  - OSTEOPOROSIS [None]
  - PAIN IN EXTREMITY [None]
  - PHARMACEUTICAL PRODUCT COMPLAINT [None]
  - SPINAL FRACTURE [None]
